FAERS Safety Report 11175649 (Version 1)
Quarter: 2015Q2

REPORT INFORMATION
  Report Type: Spontaneous
  Country: US (occurrence: US)
  Receive Date: 20150609
  Receipt Date: 20150609
  Transmission Date: 20150821
  Serious: Yes (Hospitalization)
  Sender: FDA-Public Use
  Company Number: US-GLAXOSMITHKLINE-US2015GSK078728

PATIENT
  Sex: Female

DRUGS (1)
  1. FLOLAN [Suspect]
     Active Substance: EPOPROSTENOL SODIUM
     Indication: PULMONARY ARTERIAL HYPERTENSION
     Dosage: 44 NG/KG/MIN CONCENTRATION 60,000 NG/ML VIAL STRENGTH 1.5 MG
     Route: 042
     Dates: start: 20000315

REACTIONS (3)
  - Pain in jaw [Unknown]
  - Headache [Unknown]
  - Therapy change [Unknown]
